FAERS Safety Report 11240129 (Version 2)
Quarter: 2015Q3

REPORT INFORMATION
  Report Type: Spontaneous
  Country: JP (occurrence: JP)
  Receive Date: 20150706
  Receipt Date: 20150715
  Transmission Date: 20151125
  Serious: Yes (Other)
  Sender: FDA-Public Use
  Company Number: JP-ELI_LILLY_AND_COMPANY-JP201506009478

PATIENT
  Age: 63 Year
  Sex: Male

DRUGS (3)
  1. GEMZAR [Suspect]
     Active Substance: GEMCITABINE HYDROCHLORIDE
     Indication: LUNG ADENOCARCINOMA
     Route: 042
  2. CARBOPLATIN. [Suspect]
     Active Substance: CARBOPLATIN
     Indication: LUNG ADENOCARCINOMA
     Route: 065
  3. TAXOL [Suspect]
     Active Substance: PACLITAXEL
     Indication: LUNG ADENOCARCINOMA
     Route: 065

REACTIONS (6)
  - Red blood cell count decreased [Recovering/Resolving]
  - Small intestinal perforation [Recovering/Resolving]
  - Peritonitis [Recovering/Resolving]
  - White blood cell count decreased [Recovering/Resolving]
  - Malnutrition [Unknown]
  - Haemoglobin decreased [Recovering/Resolving]
